FAERS Safety Report 11589435 (Version 2)
Quarter: 2015Q4

REPORT INFORMATION
  Report Type: Spontaneous
  Country: US (occurrence: US)
  Receive Date: 20151002
  Receipt Date: 20151020
  Transmission Date: 20160304
  Serious: Yes (Other)
  Sender: FDA-Public Use
  Company Number: US-ELI_LILLY_AND_COMPANY-US201509007198

PATIENT
  Age: 63 Year
  Sex: Female
  Weight: 92.06 kg

DRUGS (3)
  1. LETAIRIS [Suspect]
     Active Substance: AMBRISENTAN
     Indication: PRODUCT USED FOR UNKNOWN INDICATION
     Dosage: 5 MG, QD
     Route: 065
     Dates: start: 201503
  2. TYVASO [Suspect]
     Active Substance: TREPROSTINIL
     Indication: PULMONARY ARTERIAL HYPERTENSION
     Dosage: 18-54 G (3-9 BREATHS) QID
     Route: 055
     Dates: start: 20150722
  3. ADCIRCA [Suspect]
     Active Substance: TADALAFIL
     Indication: PRODUCT USED FOR UNKNOWN INDICATION
     Dosage: UNK, UNKNOWN
     Route: 065
     Dates: end: 2015

REACTIONS (11)
  - Balance disorder [Unknown]
  - Hypertension [Unknown]
  - Abdominal distension [Unknown]
  - Ear swelling [Unknown]
  - Asthenia [Unknown]
  - Feeling abnormal [Unknown]
  - Tinnitus [Unknown]
  - Dizziness [Unknown]
  - Cough [Unknown]
  - Deafness [Unknown]
  - Fatigue [Unknown]

NARRATIVE: CASE EVENT DATE: 2015
